FAERS Safety Report 16366638 (Version 1)
Quarter: 2019Q2

REPORT INFORMATION
  Report Type: Spontaneous
  Country: US (occurrence: US)
  Receive Date: 20190529
  Receipt Date: 20190529
  Transmission Date: 20190711
  Serious: Yes (Hospitalization)
  Sender: FDA-Public Use
  Company Number: US-PERRIGO-19US006312

PATIENT
  Age: 28 Year
  Sex: Female

DRUGS (2)
  1. ASA EC [Suspect]
     Active Substance: ASPIRIN
     Indication: SUICIDE ATTEMPT
     Dosage: 5 G, WITHIN 1 HOUR
     Route: 048
  2. ACETAMINOPHEN. [Suspect]
     Active Substance: ACETAMINOPHEN
     Indication: SUICIDE ATTEMPT
     Dosage: 50 G, WITHIN 1 HOUR
     Route: 048

REACTIONS (2)
  - Acid-base balance disorder mixed [Recovered/Resolved]
  - Intentional overdose [Recovered/Resolved]
